FAERS Safety Report 14708387 (Version 3)
Quarter: 2018Q2

REPORT INFORMATION
  Report Type: Spontaneous
  Country: US (occurrence: US)
  Receive Date: 20180403
  Receipt Date: 20180518
  Transmission Date: 20180711
  Serious: No
  Sender: FDA-Public Use
  Company Number: US-PFIZER INC-2018132866

PATIENT
  Sex: Female

DRUGS (4)
  1. LIPITOR [Suspect]
     Active Substance: ATORVASTATIN CALCIUM
     Indication: HYPERTENSION
     Dosage: UNK
     Dates: start: 2008
  2. ASA [Suspect]
     Active Substance: ASPIRIN
     Indication: BLOOD DISORDER
     Dosage: UNK
     Dates: start: 2008
  3. CODEINE [Suspect]
     Active Substance: CODEINE
     Indication: PAIN
     Dosage: UNK
     Dates: start: 2013
  4. ASA [Suspect]
     Active Substance: ASPIRIN
     Indication: ABDOMINAL PAIN UPPER

REACTIONS (2)
  - Drug hypersensitivity [Not Recovered/Not Resolved]
  - Abdominal discomfort [Recovered/Resolved]
